FAERS Safety Report 5852694-1 (Version None)
Quarter: 2008Q3

REPORT INFORMATION
  Report Type: 
  Country: None (occurrence: None)
  Receive Date: 20080821
  Receipt Date: 20080812
  Transmission Date: 20090109
  Serious: Yes (Hospitalization)
  Sender: FDA-Public Use
  Company Number: US-ABBOTT-08P-163-0470270-00

PATIENT
  Age: 43 Year
  Sex: Male

DRUGS (14)
  1. KALETRA [Suspect]
     Indication: HIV INFECTION
     Route: 065
     Dates: start: 20050301
  2. RITONAVIR SOFT GELATIN CAPSULES [Suspect]
     Indication: HIV INFECTION
     Route: 048
     Dates: start: 20070729
  3. DARUNAVIR [Suspect]
     Indication: HIV INFECTION
     Route: 048
     Dates: start: 20070729, end: 20070808
  4. MK-0518 [Suspect]
     Indication: HIV INFECTION
     Route: 048
     Dates: start: 20070729
  5. EMTRICITABINE [Suspect]
     Indication: HIV INFECTION
     Route: 065
     Dates: start: 20050301
  6. ENFUVIRTIDE [Suspect]
     Indication: HIV INFECTION
     Route: 050
     Dates: start: 20080729
  7. LAMIVUDINE + ZIDOVUDINE [Suspect]
     Indication: HIV INFECTION
     Route: 048
     Dates: start: 20070729
  8. TENOFOVIR [Suspect]
     Indication: HIV INFECTION
     Route: 048
     Dates: start: 20070729
  9. AZITHROMYCIN [Concomitant]
     Indication: DRUG USE FOR UNKNOWN INDICATION
     Dates: start: 20030101
  10. DAPSONE [Concomitant]
     Indication: DRUG USE FOR UNKNOWN INDICATION
     Dates: start: 20060101
  11. FERROUS SULFATE TAB [Concomitant]
     Indication: DRUG USE FOR UNKNOWN INDICATION
     Dates: start: 20070701
  12. FLUCONAZOLE [Concomitant]
     Indication: DRUG USE FOR UNKNOWN INDICATION
     Dates: start: 20030101
  13. NAPROSYN [Concomitant]
     Indication: DRUG USE FOR UNKNOWN INDICATION
     Dates: start: 20070725
  14. LANTUS [Concomitant]
     Indication: DRUG USE FOR UNKNOWN INDICATION
     Dates: start: 20060101

REACTIONS (11)
  - ADRENAL INSUFFICIENCY [None]
  - BLOOD ALKALINE PHOSPHATASE INCREASED [None]
  - DEHYDRATION [None]
  - DIARRHOEA [None]
  - HEADACHE [None]
  - HYPOTENSION [None]
  - LIVER FUNCTION TEST ABNORMAL [None]
  - NAUSEA [None]
  - PYREXIA [None]
  - RENAL FAILURE ACUTE [None]
  - SEPSIS [None]
